FAERS Safety Report 23748326 (Version 2)
Quarter: 2024Q2

REPORT INFORMATION
  Report Type: Spontaneous
  Country: US (occurrence: US)
  Receive Date: 20240416
  Receipt Date: 20240614
  Transmission Date: 20240716
  Serious: No
  Sender: FDA-Public Use
  Company Number: US-SA-SAC20240413000114

PATIENT
  Age: 52 Year
  Sex: Female

DRUGS (1)
  1. DUPIXENT [Suspect]
     Active Substance: DUPILUMAB
     Indication: Eczema
     Dosage: 300 MG, QOW
     Route: 058
     Dates: start: 20231128

REACTIONS (8)
  - Sleep disorder due to a general medical condition [Unknown]
  - Condition aggravated [Unknown]
  - Loss of personal independence in daily activities [Unknown]
  - Affective disorder [Unknown]
  - Emotional disorder [Unknown]
  - Eczema [Not Recovered/Not Resolved]
  - Therapeutic response decreased [Unknown]
  - Product dose omission in error [Unknown]
